FAERS Safety Report 16828709 (Version 1)
Quarter: 2019Q3

REPORT INFORMATION
  Report Type: Spontaneous
  Country: NL (occurrence: NL)
  Receive Date: 20190919
  Receipt Date: 20190919
  Transmission Date: 20191005
  Serious: Yes (Hospitalization)
  Sender: FDA-Public Use
  Company Number: NL-MYLANLABS-2019M1086985

PATIENT
  Age: 45 Year
  Sex: Male

DRUGS (4)
  1. KALIUMCHLORIDE [Concomitant]
     Dosage: 2 KEER PER DAG 1 TABLET
  2. MOVICOLON [Concomitant]
     Active Substance: POLYETHYLENE GLYCOL 3350\POTASSIUM CHLORIDE\SODIUM BICARBONATE\SODIUM CHLORIDE
     Dosage: ZO NODIG 1 KEER PER DAG 1 STUK
  3. CAPECITABINE. [Suspect]
     Active Substance: CAPECITABINE
     Indication: LUNG NEOPLASM MALIGNANT
     Dosage: 2 KEER PER DAG 1650 MG
     Route: 048
     Dates: start: 20180301, end: 20180319
  4. PARACETAMOL [Concomitant]
     Active Substance: ACETAMINOPHEN
     Dosage: ZO NODIG 4 KEER PER DAG 2 STUK

REACTIONS (1)
  - Arteriospasm coronary [Recovered/Resolved]

NARRATIVE: CASE EVENT DATE: 20180315
